FAERS Safety Report 10767243 (Version 4)
Quarter: 2015Q4

REPORT INFORMATION
  Report Type: Spontaneous
  Country: JP (occurrence: JP)
  Receive Date: 20150205
  Receipt Date: 20151118
  Transmission Date: 20160304
  Serious: Yes (Death)
  Sender: FDA-Public Use
  Company Number: JP-TEVA-537863ISR

PATIENT
  Age: 51 Year
  Sex: Male
  Weight: 64 kg

DRUGS (6)
  1. DUROTEP (FENTANYL) [Concomitant]
     Indication: CANCER PAIN
     Dosage: 4.2 MILLIGRAM DAILY;
     Route: 062
     Dates: start: 20141016, end: 20141021
  2. E-FEN BUCCAL (FENTANYL CITRATE) [Suspect]
     Active Substance: FENTANYL CITRATE
     Dosage: 400-1400 MICROGRAM  DAILY DOSE
     Route: 002
     Dates: start: 20141022, end: 20141028
  3. DUROTEP (FENTANYL) [Concomitant]
     Dosage: 12.6 MILLIGRAM DAILY;
     Route: 062
     Dates: start: 20141025, end: 20141028
  4. DUROTEP (FENTANYL) [Concomitant]
     Dosage: 8.4 MILLIGRAM DAILY;
     Route: 062
     Dates: start: 20141022, end: 20141024
  5. MOBIC(MELOXICAM) [Concomitant]
     Indication: CANCER PAIN
     Route: 048
     Dates: start: 20140722, end: 20141018
  6. E-FEN BUCCAL (FENTANYL CITRATE) [Suspect]
     Active Substance: FENTANYL CITRATE
     Indication: BREAKTHROUGH PAIN
     Dosage: 100-600 MICROGRAM DAILY DOSE
     Route: 002
     Dates: start: 20141018, end: 20141022

REACTIONS (2)
  - Colorectal cancer [Fatal]
  - Somnolence [Not Recovered/Not Resolved]

NARRATIVE: CASE EVENT DATE: 20141027
